FAERS Safety Report 7141547-7 (Version None)
Quarter: 2010Q4

REPORT INFORMATION
  Report Type: 
  Country: None (occurrence: None)
  Receive Date: 20101207
  Receipt Date: 20101124
  Transmission Date: 20110411
  Serious: Yes (Other)
  Sender: FDA-Public Use
  Company Number: PHHY2010DE80702

PATIENT
  Sex: Male

DRUGS (2)
  1. AFINITOR [Suspect]
     Indication: RENAL CELL CARCINOMA
     Dosage: 10 MG, QD
     Route: 048
     Dates: start: 20100915
  2. LEVOTHYROXINE SODIUM [Concomitant]
     Dosage: UNK, INTERMITTENT

REACTIONS (2)
  - LYMPHOEDEMA [None]
  - THROMBOSIS [None]
